FAERS Safety Report 5582856-2 (Version None)
Quarter: 2008Q1

REPORT INFORMATION
  Report Type: 
  Country: None (occurrence: None)
  Receive Date: 20080107
  Receipt Date: 20080103
  Transmission Date: 20080703
  Serious: Yes (Disabling, Other)
  Sender: FDA-Public Use
  Company Number: US-ROCHE-512814

PATIENT
  Age: 15 Year
  Sex: Male
  Weight: 65.8 kg

DRUGS (4)
  1. ACCUTANE [Suspect]
     Indication: ACNE
     Route: 048
     Dates: start: 19990930, end: 19991104
  2. ACCUTANE [Suspect]
     Route: 048
     Dates: start: 19991104, end: 20000101
  3. ACCUTANE [Suspect]
     Route: 048
     Dates: start: 20000101, end: 20000224
  4. ACCUTANE [Suspect]
     Route: 048
     Dates: start: 20000224, end: 20000614

REACTIONS (13)
  - ANXIETY [None]
  - CROHN'S DISEASE [None]
  - DECREASED APPETITE [None]
  - DEPRESSION [None]
  - DRY EYE [None]
  - FEAR [None]
  - GASTROOESOPHAGEAL REFLUX DISEASE [None]
  - INFLAMMATORY BOWEL DISEASE [None]
  - INSOMNIA [None]
  - IRRITABLE BOWEL SYNDROME [None]
  - PEPTIC ULCER [None]
  - STRESS [None]
  - WEIGHT DECREASED [None]
